FAERS Safety Report 14444705 (Version 1)
Quarter: 2018Q1

REPORT INFORMATION
  Report Type: Spontaneous
  Country: DE (occurrence: DE)
  Receive Date: 20180126
  Receipt Date: 20180126
  Transmission Date: 20180509
  Serious: Yes (Hospitalization, Other)
  Sender: FDA-Public Use
  Company Number: DE-WEST-WARD PHARMACEUTICALS CORP.-DE-H14001-18-00432

PATIENT
  Age: 55 Year
  Sex: Male
  Weight: 55 kg

DRUGS (5)
  1. RIBOSETRON [Suspect]
     Active Substance: GRANISETRON HYDROCHLORIDE
     Indication: NAUSEA
     Route: 042
     Dates: start: 20171012
  2. MORPHINE SULFATE. [Suspect]
     Active Substance: MORPHINE SULFATE
     Indication: PAIN MANAGEMENT
     Route: 042
     Dates: start: 20170616
  3. OLIMEL [Suspect]
     Active Substance: AMINO ACIDS\DEXTROSE\SOYBEAN OIL
     Indication: PARENTERAL NUTRITION
     Route: 042
     Dates: start: 20170829
  4. ADDEL TRACE [Suspect]
     Active Substance: CHROMIC CATION\CUPRIC CATION\FERROUS CATION\FLUORIDE ION\IODIDE ION\MANGANESE CATION (2+)\SODIUM SELENIDE\ZINC CATION
     Indication: PARENTERAL NUTRITION
     Route: 042
     Dates: start: 20170829
  5. CERNEVIT [Suspect]
     Active Substance: VITAMINS
     Indication: PARENTERAL NUTRITION
     Route: 042
     Dates: start: 20170829

REACTIONS (4)
  - Dermatitis [Unknown]
  - Nausea [Unknown]
  - Skin lesion [Not Recovered/Not Resolved]
  - Medical device site reaction [Not Recovered/Not Resolved]

NARRATIVE: CASE EVENT DATE: 20171201
